FAERS Safety Report 9499055 (Version 2)
Quarter: 2013Q3

REPORT INFORMATION
  Report Type: Spontaneous
  Country: CA (occurrence: CA)
  Receive Date: 20130904
  Receipt Date: 20130904
  Transmission Date: 20140515
  Serious: Yes (Other)
  Sender: FDA-Public Use
  Company Number: CA-ACTAVIS-2012-14155

PATIENT
  Age: 67 Year
  Sex: Female

DRUGS (9)
  1. CIPROFLOXACIN HYDROCHLORIDE [Suspect]
     Indication: CYSTITIS
     Dosage: 500 MG, DAILY
     Route: 048
     Dates: start: 20120807, end: 20120807
  2. CIPROFLOXACIN HYDROCHLORIDE [Suspect]
     Dosage: 500 MG, BID
     Route: 048
     Dates: start: 20120808, end: 20120808
  3. HYDROMORPH CONTIN [Concomitant]
     Indication: BACK PAIN
     Dosage: 18 MG, BID
     Route: 065
  4. ARTHROTEC [Concomitant]
     Indication: BACK PAIN
     Dosage: 75 MG, BID
     Route: 065
  5. METFORMIN [Concomitant]
     Indication: DIABETES MELLITUS
     Dosage: 1000 MG, BID
     Route: 065
  6. NOVORAPID [Concomitant]
     Indication: DIABETES MELLITUS
     Dosage: UNK
     Route: 058
  7. LEVEMIR [Concomitant]
     Indication: PRODUCT USED FOR UNKNOWN INDICATION
  8. MAGNESIUM [Concomitant]
     Indication: PRODUCT USED FOR UNKNOWN INDICATION
  9. MORPHINE [Concomitant]
     Indication: PRODUCT USED FOR UNKNOWN INDICATION

REACTIONS (8)
  - Drug interaction [Recovered/Resolved]
  - Back pain [Recovered/Resolved]
  - Abdominal pain upper [Recovered/Resolved]
  - Withdrawal syndrome [Recovered/Resolved]
  - Chills [Recovering/Resolving]
  - Malaise [Recovering/Resolving]
  - Hyperhidrosis [Recovering/Resolving]
  - Abdominal discomfort [Recovering/Resolving]
